FAERS Safety Report 22074211 (Version 1)
Quarter: 2023Q1

REPORT INFORMATION
  Report Type: Spontaneous
  Country: JP (occurrence: JP)
  Receive Date: 20230308
  Receipt Date: 20230308
  Transmission Date: 20230418
  Serious: Yes (Other)
  Sender: FDA-Public Use
  Company Number: JP-Eisai-202215062_LUN_P_1

PATIENT

DRUGS (2)
  1. LUNESTA [Suspect]
     Active Substance: ESZOPICLONE
     Dosage: DOSE UNKNOWN
     Route: 048
  2. BELSOMRA [Suspect]
     Active Substance: SUVOREXANT
     Dosage: DOSE UNKNOWN
     Route: 065

REACTIONS (3)
  - Loss of consciousness [Unknown]
  - Adverse event [Unknown]
  - Overdose [Unknown]
